FAERS Safety Report 11309488 (Version 1)
Quarter: 2015Q3

REPORT INFORMATION
  Report Type: Spontaneous
  Country: CH (occurrence: CH)
  Receive Date: 20150724
  Receipt Date: 20150724
  Transmission Date: 20151125
  Serious: Yes (Hospitalization)
  Sender: FDA-Public Use
  Company Number: CH-GLAXOSMITHKLINE-CH2015104163

PATIENT
  Age: 65 Year
  Sex: Female
  Weight: 54 kg

DRUGS (6)
  1. NOVALGIN [Suspect]
     Active Substance: METAMIZOLE SODIUM
     Indication: POSTOPERATIVE ANALGESIA
     Route: 065
     Dates: start: 20150602, end: 20150607
  2. CLEXANE [Suspect]
     Active Substance: ENOXAPARIN SODIUM
     Indication: THROMBOSIS PROPHYLAXIS
     Route: 058
     Dates: start: 20150602, end: 20150607
  3. OPTIFEN [Suspect]
     Active Substance: IBUPROFEN
     Indication: POSTOPERATIVE ANALGESIA
     Route: 048
     Dates: start: 20150602, end: 20150608
  4. CONCOR 5 (MITE) LACKTABLETTEN [Concomitant]
     Indication: HYPERTENSION
     Route: 048
     Dates: start: 2009
  5. SIMVASIN SPIRIG HC [Concomitant]
     Indication: DYSLIPIDAEMIA
     Route: 048
     Dates: start: 2009
  6. ZINACEF [Suspect]
     Active Substance: CEFUROXIME SODIUM
     Indication: PATELLA FRACTURE
     Route: 042
     Dates: start: 20150602, end: 20150602

REACTIONS (1)
  - Acute generalised exanthematous pustulosis [Recovering/Resolving]

NARRATIVE: CASE EVENT DATE: 20150605
